FAERS Safety Report 19788789 (Version 7)
Quarter: 2022Q2

REPORT INFORMATION
  Report Type: Spontaneous
  Country: CA (occurrence: CA)
  Receive Date: 20210904
  Receipt Date: 20220625
  Transmission Date: 20220721
  Serious: Yes (Other)
  Sender: FDA-Public Use
  Company Number: CA-CELLTRION INC.-2021CA012103

PATIENT

DRUGS (24)
  1. INFLECTRA [Suspect]
     Active Substance: INFLIXIMAB-DYYB
     Indication: Colitis ulcerative
     Dosage: 500 MG, 0, 2, 6 THEN EVERY 4 WEEKS
     Route: 042
     Dates: start: 20180606, end: 20190423
  2. INFLECTRA [Suspect]
     Active Substance: INFLIXIMAB-DYYB
     Dosage: 600 MG, EVERY 4 WEEKS
     Route: 042
     Dates: start: 20190521, end: 20200325
  3. INFLECTRA [Suspect]
     Active Substance: INFLIXIMAB-DYYB
     Dosage: 700 MG, EVERY 4 WEEKS
     Route: 042
     Dates: start: 20200422
  4. INFLECTRA [Suspect]
     Active Substance: INFLIXIMAB-DYYB
     Dosage: 700 MG, EVERY 4 WEEKS
     Route: 042
     Dates: start: 20210727
  5. INFLECTRA [Suspect]
     Active Substance: INFLIXIMAB-DYYB
     Dosage: 700 MG, EVERY 4 WEEKS
     Route: 042
     Dates: start: 20210727
  6. INFLECTRA [Suspect]
     Active Substance: INFLIXIMAB-DYYB
     Dosage: 700 MG, EVERY 4 WEEKS
     Route: 042
     Dates: start: 20210917
  7. INFLECTRA [Suspect]
     Active Substance: INFLIXIMAB-DYYB
     Dosage: 700 MG, EVERY 4 WEEKS
     Route: 042
     Dates: start: 20220408
  8. INFLECTRA [Suspect]
     Active Substance: INFLIXIMAB-DYYB
     Dosage: 700 MG, EVERY 4 WEEKS
     Route: 042
     Dates: start: 20220517
  9. INFLECTRA [Suspect]
     Active Substance: INFLIXIMAB-DYYB
     Dosage: 700 MG, EVERY 4 WEEKS
     Route: 042
     Dates: start: 20220614
  10. ALFUZOSIN [Concomitant]
     Active Substance: ALFUZOSIN
     Dosage: 10 MG, 1X/DAY
  11. CORTISONE [Concomitant]
     Active Substance: CORTISONE
     Dosage: 1 DF
     Dates: start: 201911
  12. ELIQUIS [Concomitant]
     Active Substance: APIXABAN
     Dosage: 1 DF, DOSAGE NOT AVAILABLE
     Route: 065
  13. JAMP CALCIUM [Concomitant]
     Dosage: 500 MG, 1X/DAY
  14. CHOLECALCIFEROL [Concomitant]
     Active Substance: CHOLECALCIFEROL
     Dosage: 10000 IU, WEEKLY
  15. JAMP NYSTATIN [Concomitant]
     Dosage: UNK, 4X/DAY (RINSE MOUTH QID FOR 7 DAYS)
     Route: 048
  16. JAMP NYSTATIN [Concomitant]
     Dosage: 1 DF, RINSE MOUTH QID FOR 7 DAYS
  17. LORAZEPAM [Concomitant]
     Active Substance: LORAZEPAM
     Indication: Insomnia
     Dosage: 1 DF, 1/2 TABLET OF 0.5MG HS PRN
  18. BISOPROLOL FUMARATE [Concomitant]
     Active Substance: BISOPROLOL FUMARATE
     Dosage: 1 DF, UNK DOSE
     Dates: start: 2019
  19. NYSTATIN [NYSTATIN;ZINC OXIDE] [Concomitant]
     Dosage: UNK, 4X/DAY (RINSE MOUTH QID FOR 7 DAYS)
     Route: 048
  20. PEPTIDES NOS [Concomitant]
     Dosage: 1 DF, 1X/DAY (1 BOTTLE), 1 BOTTLE PER DAY
  21. SANDOZ ALENDRONATE/CHOLECALCIFEROL [Concomitant]
     Indication: Osteoporosis
     Dosage: 70 MG, WEEKLY
  22. SPIRIVA [Concomitant]
     Active Substance: TIOTROPIUM BROMIDE MONOHYDRATE
     Dosage: 18 UG, 1X/DAY
  23. TEVA AZATHIOPRINE [Concomitant]
     Dosage: 100 MG, 1X/DAY
  24. PREGABALIN [Concomitant]
     Active Substance: PREGABALIN
     Dosage: 50 MG OD AT NOON AND 150 MG BID AT 7 AM AND 9 PM

REACTIONS (16)
  - Cellulitis [Unknown]
  - Erythema [Not Recovered/Not Resolved]
  - Oedema [Unknown]
  - Body temperature abnormal [Unknown]
  - Discharge [Unknown]
  - Oedema peripheral [Unknown]
  - Arthralgia [Unknown]
  - Peripheral swelling [Unknown]
  - Condition aggravated [Not Recovered/Not Resolved]
  - Secretion discharge [Unknown]
  - Wound [Unknown]
  - Skin discolouration [Unknown]
  - Excessive granulation tissue [Unknown]
  - Cellulite [Unknown]
  - Off label use [Unknown]
  - Inappropriate schedule of product administration [Unknown]

NARRATIVE: CASE EVENT DATE: 20180606
